FAERS Safety Report 4287451-3 (Version None)
Quarter: 2004Q1

REPORT INFORMATION
  Report Type: 
  Country: None (occurrence: None)
  Receive Date: 20040209
  Receipt Date: 20030630
  Transmission Date: 20041129
  Serious: No
  Sender: FDA-Public Use
  Company Number: US-GLAXOSMITHKLINE-A0414380A

PATIENT
  Age: 67 Year
  Sex: Male

DRUGS (4)
  1. PAXIL CR [Suspect]
     Indication: PANIC DISORDER
     Dosage: 12.5MG PER DAY
     Route: 048
     Dates: start: 20030623
  2. MULTIVITAMIN [Concomitant]
  3. LIPITOR [Concomitant]
  4. PREVACID [Concomitant]

REACTIONS (2)
  - ABNORMAL FAECES [None]
  - DIARRHOEA [None]
